FAERS Safety Report 15658996 (Version 1)
Quarter: 2018Q4

REPORT INFORMATION
  Report Type: Report from Study
  Country: None (occurrence: US)
  Receive Date: 20181127
  Receipt Date: 20181127
  Transmission Date: 20190205
  Serious: Yes (Death)
  Sender: FDA-Public Use
  Company Number: US-UNICHEM PHARMACEUTICALS (USA) INC-UCM201811-000325

PATIENT

DRUGS (3)
  1. MEMANTINE. [Suspect]
     Active Substance: MEMANTINE
  2. TEMOZOLOMIDE. [Suspect]
     Active Substance: TEMOZOLOMIDE
  3. MEFLOQUINE [Suspect]
     Active Substance: MEFLOQUINE

REACTIONS (1)
  - Pneumonia [Fatal]
